FAERS Safety Report 19753609 (Version 6)
Quarter: 2023Q1

REPORT INFORMATION
  Report Type: Spontaneous
  Country: JP (occurrence: JP)
  Receive Date: 20210826
  Receipt Date: 20230206
  Transmission Date: 20230418
  Serious: Yes (Hospitalization, Other)
  Sender: FDA-Public Use
  Company Number: JP-BRISTOL-MYERS SQUIBB COMPANY-BMS-2021-083386

PATIENT
  Age: 72 Year
  Sex: Male
  Weight: 57 kg

DRUGS (2)
  1. YERVOY [Suspect]
     Active Substance: IPILIMUMAB
     Indication: Metastatic renal cell carcinoma
     Route: 041
     Dates: start: 20210510, end: 20210623
  2. OPDIVO [Suspect]
     Active Substance: NIVOLUMAB
     Indication: Metastatic renal cell carcinoma
     Route: 041
     Dates: start: 20210510, end: 20210623

REACTIONS (11)
  - Malaise [Recovering/Resolving]
  - Vomiting [Recovering/Resolving]
  - Hypokalaemia [Unknown]
  - Hypophysitis [Recovering/Resolving]
  - Immune-mediated enterocolitis [Recovering/Resolving]
  - Nausea [Recovering/Resolving]
  - Constipation [Unknown]
  - Adrenal insufficiency [Not Recovered/Not Resolved]
  - Dehydration [Unknown]
  - Dysphagia [Unknown]
  - Hyponatraemia [Unknown]

NARRATIVE: CASE EVENT DATE: 20210707
